FAERS Safety Report 11894132 (Version 2)
Quarter: 2016Q1

REPORT INFORMATION
  Report Type: Spontaneous
  Country: GB (occurrence: GB)
  Receive Date: 20160107
  Receipt Date: 20160122
  Transmission Date: 20160526
  Serious: Yes (Hospitalization, Other)
  Sender: FDA-Public Use
  Company Number: GB-ROCHE-1689777

PATIENT
  Age: 36 Year
  Sex: Female

DRUGS (11)
  1. DACLATASVIR. [Interacting]
     Active Substance: DACLATASVIR
     Indication: HEPATIC CIRRHOSIS
  2. SOFOSBUVIR [Interacting]
     Active Substance: SOFOSBUVIR
     Indication: HEPATITIS C VIRUS TEST POSITIVE
     Route: 065
     Dates: start: 201408
  3. NORETHISTERONE [Interacting]
     Active Substance: NORETHINDRONE
     Indication: POLYCYSTIC OVARIES
     Route: 065
     Dates: end: 2014
  4. NORETHISTERONE [Interacting]
     Active Substance: NORETHINDRONE
     Route: 065
     Dates: start: 201407
  5. DESOGESTREL [Interacting]
     Active Substance: DESOGESTREL
     Indication: POLYCYSTIC OVARIES
     Route: 065
  6. RIBAVIRIN. [Interacting]
     Active Substance: RIBAVIRIN
     Indication: HEPATITIS C VIRUS TEST POSITIVE
     Route: 065
     Dates: start: 2012
  7. PEG-INTERFERON ALFA 2A [Suspect]
     Active Substance: PEGINTERFERON ALFA-2A
     Indication: HEPATITIS C
     Route: 065
     Dates: start: 2012
  8. DACLATASVIR. [Interacting]
     Active Substance: DACLATASVIR
     Indication: HEPATITIS C VIRUS TEST POSITIVE
     Route: 065
  9. RIBAVIRIN. [Interacting]
     Active Substance: RIBAVIRIN
     Indication: HEPATIC CIRRHOSIS
     Route: 065
     Dates: start: 201408
  10. RIGEVIDON [Interacting]
     Active Substance: ETHINYL ESTRADIOL\LEVONORGESTREL
     Indication: POLYCYSTIC OVARIES
     Route: 065
     Dates: start: 20140731
  11. SOFOSBUVIR [Interacting]
     Active Substance: SOFOSBUVIR
     Indication: HEPATIC CIRRHOSIS

REACTIONS (4)
  - Hepatic cirrhosis [Unknown]
  - Jaundice [Unknown]
  - Drug-induced liver injury [Unknown]
  - Drug interaction [Unknown]
